FAERS Safety Report 4520435-6 (Version None)
Quarter: 2004Q4

REPORT INFORMATION
  Report Type: 
  Country: None (occurrence: None)
  Receive Date: 20041206
  Receipt Date: 20041123
  Transmission Date: 20050328
  Serious: Yes (Other)
  Sender: FDA-Public Use
  Company Number: 2002-UK-00282UK

PATIENT
  Sex: Male

DRUGS (9)
  1. NEVIRAPINE (EU/1/97/055/001) (NEVIRAPINE) (NR) [Suspect]
     Indication: HIV INFECTION
     Dosage: 200 MG (200 MG) IU
     Route: 015
  2. ABACAVIR SULPHATE (NR) [Suspect]
     Indication: HIV INFECTION
     Dosage: 300 MG TWICE DAILY (300 MG, TWICE DAILY) IU
     Route: 015
  3. ZIDOVUDINE [Suspect]
     Indication: HIV INFECTION
     Dosage: 250 MG TWICE DAILY (250 MG, TWICE DAILY)) IU
     Route: 015
     Dates: start: 20010501
  4. ZERIT [Suspect]
     Indication: HIV INFECTION
     Dosage: 40 MG TWICE DAILY (40 MG, TWICE DAILY) IU
     Route: 015
     Dates: end: 20010501
  5. VIDEX [Suspect]
     Indication: HIV INFECTION
     Dosage: 200 MG TWICE DAILY (, TWICE DAILY) IU
     Route: 015
  6. FOLIC ACID [Concomitant]
  7. SEPTRIN (BACTRIM) (NR) [Concomitant]
  8. FERROUS FULPHATE ANHYDROUS (FERROUS SULFATE) (NR) [Concomitant]
  9. DEXTROSE MONOHYDRATE (NR) [Concomitant]

REACTIONS (8)
  - BLOOD INSULIN INCREASED [None]
  - CAESAREAN SECTION [None]
  - DRUG EXPOSURE DURING PREGNANCY [None]
  - FOETAL DISTRESS SYNDROME [None]
  - HYPOGLYCAEMIA NEONATAL [None]
  - NEONATAL DISORDER [None]
  - NERVOUS SYSTEM DISORDER [None]
  - SMALL FOR DATES BABY [None]
